FAERS Safety Report 10607602 (Version 1)
Quarter: 2014Q4

REPORT INFORMATION
  Report Type: Spontaneous
  Country: US (occurrence: None)
  Receive Date: 20141124
  Receipt Date: 20141124
  Transmission Date: 20150529
  Serious: Yes (Hospitalization)
  Sender: FDA-Public Use
  Company Number: None

PATIENT
  Age: 75 Year
  Sex: Female
  Weight: 69.9 kg

DRUGS (32)
  1. BRIMONIDINE [Concomitant]
     Active Substance: BRIMONIDINE\BRIMONIDINE TARTRATE
  2. EFFIENT [Concomitant]
     Active Substance: PRASUGREL HYDROCHLORIDE
  3. ZOFRAN [Concomitant]
     Active Substance: ONDANSETRON HYDROCHLORIDE
  4. DORZOLAMIDE [Concomitant]
     Active Substance: DORZOLAMIDE
  5. VANCOMYCIN [Concomitant]
     Active Substance: VANCOMYCIN
  6. HEPARIN [Suspect]
     Active Substance: HEPARIN SODIUM
     Indication: ACUTE MYOCARDIAL INFARCTION
     Route: 042
  7. DORZOLAMIDE [Concomitant]
     Active Substance: DORZOLAMIDE
  8. SODIUM CHLORIDE. [Concomitant]
     Active Substance: SODIUM CHLORIDE
  9. BUMEX [Concomitant]
     Active Substance: BUMETANIDE
  10. PROTONIX [Concomitant]
     Active Substance: PANTOPRAZOLE SODIUM
  11. ECOTRIN [Concomitant]
     Active Substance: ASPIRIN
  12. MEDIHONEY GEL [Concomitant]
  13. LISINOPRIL. [Concomitant]
     Active Substance: LISINOPRIL
  14. ASPIRIN. [Concomitant]
     Active Substance: ASPIRIN
  15. HEPARIN [Suspect]
     Active Substance: HEPARIN SODIUM
     Indication: ATRIAL FIBRILLATION
     Route: 042
  16. HEPARIN [Concomitant]
     Active Substance: HEPARIN SODIUM
  17. LIPITOR [Concomitant]
     Active Substance: ATORVASTATIN CALCIUM
  18. AMIODARONE [Concomitant]
     Active Substance: AMIODARONE
  19. BRIMONIDINE [Concomitant]
     Active Substance: BRIMONIDINE\BRIMONIDINE TARTRATE
  20. LANTUS [Concomitant]
     Active Substance: INSULIN GLARGINE
  21. REGLAN [Concomitant]
     Active Substance: METOCLOPRAMIDE HYDROCHLORIDE
  22. MORPHINE [Concomitant]
     Active Substance: MORPHINE
  23. EPTIFIBATIDE [Concomitant]
     Active Substance: EPTIFIBATIDE
  24. CHLORHEXIDINE [Concomitant]
     Active Substance: CHLORHEXIDINE
  25. DIGOXIN. [Concomitant]
     Active Substance: DIGOXIN
  26. HEPARIN [Suspect]
     Active Substance: HEPARIN SODIUM
     Indication: ACUTE CORONARY SYNDROME
     Route: 042
  27. INSULIN [Concomitant]
     Active Substance: INSULIN NOS
  28. METOPROLOL TARTRATE. [Concomitant]
     Active Substance: METOPROLOL TARTRATE
  29. PREMIX DILUENT [Concomitant]
  30. WELLBUTRIN [Concomitant]
     Active Substance: BUPROPION HYDROCHLORIDE
  31. LATANOPROST. [Concomitant]
     Active Substance: LATANOPROST
  32. HYDROCORTISONE. [Concomitant]
     Active Substance: HYDROCORTISONE

REACTIONS (1)
  - Heparin-induced thrombocytopenia [None]

NARRATIVE: CASE EVENT DATE: 20141104
